FAERS Safety Report 18729394 (Version 1)
Quarter: 2021Q1

REPORT INFORMATION
  Report Type: Spontaneous
  Country: US (occurrence: US)
  Receive Date: 20210111
  Receipt Date: 20210111
  Transmission Date: 20210419
  Serious: Yes (Hospitalization)
  Sender: FDA-Public Use
  Company Number: None

PATIENT
  Sex: Male
  Weight: 112.5 kg

DRUGS (10)
  1. METROGEL [Concomitant]
     Active Substance: METRONIDAZOLE
  2. LETROZOLE. [Concomitant]
     Active Substance: LETROZOLE
  3. OXYCODONE [Concomitant]
     Active Substance: OXYCODONE
  4. TRULICITY [Concomitant]
     Active Substance: DULAGLUTIDE
  5. PIQRAY [Suspect]
     Active Substance: ALPELISIB
     Indication: BREAST CANCER
     Dates: start: 20201219
  6. IBUPROFEN. [Concomitant]
     Active Substance: IBUPROFEN
  7. LUPRON [Concomitant]
     Active Substance: LEUPROLIDE ACETATE
  8. METFORMIN [Concomitant]
     Active Substance: METFORMIN HYDROCHLORIDE
  9. TRAMADOL. [Concomitant]
     Active Substance: TRAMADOL
  10. MULTIVITAMIN [Concomitant]
     Active Substance: VITAMINS

REACTIONS (1)
  - Medical device implantation [None]
